FAERS Safety Report 5066005-5 (Version None)
Quarter: 2006Q3

REPORT INFORMATION
  Report Type: 
  Country: None (occurrence: None)
  Receive Date: 20060731
  Receipt Date: 20060724
  Transmission Date: 20061208
  Serious: Yes (Life-Threatening, Hospitalization)
  Sender: FDA-Public Use
  Company Number: JP-ABBOTT-06P-087-0339005-00

PATIENT
  Age: 74 Year
  Sex: Female
  Weight: 37 kg

DRUGS (2)
  1. CLARITHROMYCIN [Suspect]
     Indication: COUGH
     Route: 048
     Dates: end: 20060414
  2. HERB MEDICINE (TUMURA SHOSAIKO-TO) [Suspect]
     Indication: HEPATITIS C
     Route: 048
     Dates: end: 20060414

REACTIONS (4)
  - DECREASED APPETITE [None]
  - HYPOKALAEMIA [None]
  - SYNCOPE [None]
  - TORSADE DE POINTES [None]
